FAERS Safety Report 7648698-9 (Version None)
Quarter: 2011Q3

REPORT INFORMATION
  Report Type: 
  Country: None (occurrence: None)
  Receive Date: 20110801
  Receipt Date: 20110722
  Transmission Date: 20111222
  Serious: Yes (Hospitalization, Other)
  Sender: FDA-Public Use
  Company Number: PHHY2011FR66850

PATIENT
  Age: 47 Year
  Sex: Male

DRUGS (3)
  1. VOLTAREN [Suspect]
     Indication: BACK PAIN
     Dosage: 1 DF, TID
     Route: 048
     Dates: start: 20100925, end: 20100930
  2. KETOPROFEN [Suspect]
     Indication: BACK PAIN
     Dosage: 2 %, UNK
     Dates: start: 20100925, end: 20100930
  3. THIOCOLCHICOSIDE [Concomitant]
     Indication: BACK PAIN
     Dosage: UNK UKN, UNK
     Dates: start: 20100925, end: 20100930

REACTIONS (21)
  - TOXICITY TO VARIOUS AGENTS [None]
  - PYREXIA [None]
  - TUBULOINTERSTITIAL NEPHRITIS [None]
  - PANCREATITIS [None]
  - BLOOD BILIRUBIN INCREASED [None]
  - LIPASE INCREASED [None]
  - C-REACTIVE PROTEIN INCREASED [None]
  - ANURIA [None]
  - HEPATITIS CHOLESTATIC [None]
  - ABDOMINAL PAIN [None]
  - BLOOD CREATININE INCREASED [None]
  - VOMITING [None]
  - NAUSEA [None]
  - KIDNEY ENLARGEMENT [None]
  - AZOTAEMIA [None]
  - BILIRUBIN CONJUGATED INCREASED [None]
  - UVEITIS [None]
  - HYPONATRAEMIA [None]
  - TUBULOINTERSTITIAL NEPHRITIS AND UVEITIS SYNDROME [None]
  - OVERDOSE [None]
  - TREMOR [None]
